FAERS Safety Report 6193935-3 (Version None)
Quarter: 2009Q2

REPORT INFORMATION
  Report Type: 
  Country: None (occurrence: None)
  Receive Date: 20090518
  Receipt Date: 20090512
  Transmission Date: 20091009
  Serious: Yes (Disabling, Other)
  Sender: FDA-Public Use
  Company Number: GB-TEVA-194745ISR

PATIENT
  Age: 38 Year
  Sex: Female
  Weight: 154 kg

DRUGS (1)
  1. METFORMIN HCL [Suspect]
     Indication: POLYCYSTIC OVARIES
     Route: 048
     Dates: start: 20090121

REACTIONS (1)
  - PSORIASIS [None]
